FAERS Safety Report 9209812 (Version 1)
Quarter: 2013Q2

REPORT INFORMATION
  Report Type: Spontaneous
  Country: US (occurrence: US)
  Receive Date: 20130404
  Receipt Date: 20130404
  Transmission Date: 20140414
  Serious: Yes (Other)
  Sender: FDA-Public Use
  Company Number: US-ASTELLAS-2013US001191

PATIENT
  Age: 63 Year
  Sex: Male

DRUGS (1)
  1. MYRBETRIQ [Suspect]
     Indication: HYPERTONIC BLADDER
     Dosage: UNK
     Route: 048
     Dates: start: 20121218, end: 20121224

REACTIONS (2)
  - Heart rate increased [Recovered/Resolved]
  - Palpitations [Recovered/Resolved]
